FAERS Safety Report 9287338 (Version 1)
Quarter: 2013Q2

REPORT INFORMATION
  Report Type: Spontaneous
  Country: BR (occurrence: BR)
  Receive Date: 20130514
  Receipt Date: 20130514
  Transmission Date: 20140414
  Serious: Yes (Other)
  Sender: FDA-Public Use
  Company Number: BR-AMGEN-BRASP2011025395

PATIENT
  Age: 83 Year
  Sex: Female
  Weight: 70 kg

DRUGS (12)
  1. ENBREL [Suspect]
     Indication: RHEUMATOID ARTHRITIS
     Dosage: 50 MG, QWK
     Route: 058
     Dates: start: 2009
  2. ENBREL [Suspect]
     Dosage: 50 MG, QWK
     Route: 058
     Dates: start: 201007
  3. ENBREL [Suspect]
     Dosage: 50 MG, WEEKLY
     Dates: start: 2010
  4. ENBREL [Suspect]
     Dosage: 50 MG, QWK
     Route: 058
     Dates: start: 201112, end: 201211
  5. DIPYRONE [Suspect]
     Dosage: UNK
  6. FOLIC ACID [Concomitant]
     Dosage: 2.5 MG, TWO TABLETS 1X/WEEK
     Dates: start: 201102
  7. FOLIC ACID [Concomitant]
     Dosage: 25 MG, ONCE WEEKLY
  8. PREDNISONE [Concomitant]
     Dosage: 5 MG, UNK
     Dates: start: 2009
  9. METHOTREXATE [Concomitant]
     Dosage: 8 MG ONCE A WEEK
     Dates: start: 2011
  10. METHOTREXATE [Concomitant]
     Dosage: 2ML (50MG), ONCE A DAY (INJECTION)
  11. SERTRALINE [Concomitant]
     Dosage: UNK
     Dates: start: 201102
  12. LYRICA [Concomitant]
     Dosage: 75 MG, 2X/DAY

REACTIONS (15)
  - Dengue fever [Not Recovered/Not Resolved]
  - Musculoskeletal pain [Not Recovered/Not Resolved]
  - Swelling [Not Recovered/Not Resolved]
  - Arthralgia [Not Recovered/Not Resolved]
  - Eye pain [Not Recovered/Not Resolved]
  - Cataract [Unknown]
  - Epistaxis [Recovered/Resolved]
  - Fall [Unknown]
  - Ligament sprain [Unknown]
  - Limb injury [Unknown]
  - Inflammation [Unknown]
  - Erythema [Not Recovered/Not Resolved]
  - Head injury [Unknown]
  - Injection site pain [Unknown]
  - Injection site discolouration [Unknown]
